FAERS Safety Report 15579808 (Version 1)
Quarter: 2018Q4

REPORT INFORMATION
  Report Type: Spontaneous
  Country: US (occurrence: US)
  Receive Date: 20181102
  Receipt Date: 20181102
  Transmission Date: 20190205
  Serious: Yes (Other)
  Sender: FDA-Public Use
  Company Number: None

PATIENT
  Sex: Female
  Weight: 60.75 kg

DRUGS (1)
  1. METHAMPHETAMINE [Suspect]
     Active Substance: METHAMPHETAMINE
     Indication: SUBSTANCE USE
     Dosage: ?          QUANTITY:0.34 GRAMS;?
     Route: 055
     Dates: start: 20181101, end: 20181101

REACTIONS (2)
  - Eye injury [None]
  - Foreign body in eye [None]

NARRATIVE: CASE EVENT DATE: 20181101
